FAERS Safety Report 4579846-5 (Version None)
Quarter: 2005Q1

REPORT INFORMATION
  Report Type: 
  Country: None (occurrence: None)
  Receive Date: 20050214
  Receipt Date: 20050201
  Transmission Date: 20050727
  Serious: Yes (Death, Hospitalization)
  Sender: FDA-Public Use
  Company Number: US-JNJFOC-20040902132

PATIENT
  Sex: Male
  Weight: 12.47 kg

DRUGS (4)
  1. TOPAMAX [Suspect]
     Dosage: VIA G-TUBE
  2. KLONOPIN [Concomitant]
  3. ALBUTEROL [Concomitant]
  4. MOTRIN [Concomitant]

REACTIONS (37)
  - AMMONIA INCREASED [None]
  - ANURIA [None]
  - BLOOD ALBUMIN INCREASED [None]
  - BLOOD BICARBONATE DECREASED [None]
  - BLOOD CHLORIDE DECREASED [None]
  - BLOOD CREATINE PHOSPHOKINASE INCREASED [None]
  - BLOOD CREATININE DECREASED [None]
  - BLOOD GLUCOSE DECREASED [None]
  - BLOOD GLUCOSE INCREASED [None]
  - BLOOD MAGNESIUM ABNORMAL [None]
  - BODY TEMPERATURE INCREASED [None]
  - BRAIN OEDEMA [None]
  - BRAIN STEM SYNDROME [None]
  - CONVULSION [None]
  - DEHYDRATION [None]
  - DIARRHOEA [None]
  - ENCEPHALOPATHY [None]
  - HAEMOLYSIS [None]
  - HEART RATE INCREASED [None]
  - HEPATIC FAILURE [None]
  - HYPERKALAEMIA [None]
  - HYPERTHERMIA MALIGNANT [None]
  - HYPONATRAEMIA [None]
  - ILEUS [None]
  - INTERCOSTAL RETRACTION [None]
  - INTERNATIONAL NORMALISED RATIO INCREASED [None]
  - IRRITABILITY [None]
  - MULTI-ORGAN FAILURE [None]
  - PLATELET COUNT INCREASED [None]
  - RENAL FAILURE [None]
  - RENAL FAILURE ACUTE [None]
  - RESPIRATORY ARREST [None]
  - RESPIRATORY DISTRESS [None]
  - RESPIRATORY RATE INCREASED [None]
  - SEPTIC SHOCK [None]
  - STARING [None]
  - VIRAL INFECTION [None]
